FAERS Safety Report 21584668 (Version 1)
Quarter: 2022Q4

REPORT INFORMATION
  Report Type: Spontaneous
  Country: US (occurrence: None)
  Receive Date: 20221111
  Receipt Date: 20221111
  Transmission Date: 20230112
  Serious: No
  Sender: FDA-Public Use
  Company Number: 2022A345673

PATIENT
  Age: 25920 Day
  Sex: Female
  Weight: 63.5 kg

DRUGS (1)
  1. BUDESONIDE\FORMOTEROL\GLYCOPYRRONIUM [Suspect]
     Active Substance: BUDESONIDE\FORMOTEROL\GLYCOPYRRONIUM
     Indication: Asthma
     Dosage: 1160/9/4.8MCG 2 PUFFS TWICE A DAY
     Route: 055
     Dates: start: 20221002, end: 20221007

REACTIONS (7)
  - Oral discomfort [Unknown]
  - Oral candidiasis [Unknown]
  - Pyrexia [Unknown]
  - Diarrhoea [Unknown]
  - Infection [Unknown]
  - Back pain [Unknown]
  - Product use issue [Unknown]

NARRATIVE: CASE EVENT DATE: 20221002
